FAERS Safety Report 9310387 (Version 4)
Quarter: 2014Q1

REPORT INFORMATION
  Report Type: Spontaneous
  Country: US (occurrence: US)
  Receive Date: 20130527
  Receipt Date: 20140205
  Transmission Date: 20141002
  Serious: No
  Sender: FDA-Public Use
  Company Number: US-PFIZER INC-2013158226

PATIENT
  Age: 75 Year
  Sex: Male
  Weight: 100 kg

DRUGS (6)
  1. LYRICA [Suspect]
     Indication: NEUROPATHY PERIPHERAL
     Dosage: 100 MG, 2X/DAY
     Dates: start: 2013, end: 201401
  2. METFORMIN HCL [Interacting]
     Indication: DIABETES MELLITUS
     Dosage: 1000 MG, 2X/DAY
  3. OMEPRAZOLE [Interacting]
     Indication: GASTRIC DISORDER
     Dosage: 20 MG, 1X/DAY
  4. QUINAPRIL HCL [Interacting]
     Indication: PROPHYLAXIS
     Dosage: 20 MG, 1X/DAY
  5. ASPIRIN [Interacting]
     Indication: BLOOD DISORDER
     Dosage: 81 MG, 1X/DAY
  6. TRAMADOL HYDROCHLORIDE [Concomitant]
     Indication: PAIN IN EXTREMITY
     Dosage: 50 MG, AS NEEDED

REACTIONS (6)
  - Drug interaction [Unknown]
  - Burning sensation [Not Recovered/Not Resolved]
  - Pain in extremity [Not Recovered/Not Resolved]
  - Pain [Not Recovered/Not Resolved]
  - Insomnia [Not Recovered/Not Resolved]
  - Drug ineffective [Unknown]
